FAERS Safety Report 9023803 (Version 1)
Quarter: 2013Q1

REPORT INFORMATION
  Report Type: Spontaneous
  Country: US (occurrence: US)
  Receive Date: 20130121
  Receipt Date: 20130121
  Transmission Date: 20140127
  Serious: No
  Sender: FDA-Public Use
  Company Number: US-PFIZER INC-2013024038

PATIENT
  Age: 41 Year
  Sex: Female
  Weight: 88 kg

DRUGS (14)
  1. CELEBREX [Suspect]
     Indication: OSTEOARTHRITIS
     Dosage: 200 MG, 2X/DAY
     Dates: start: 20130116
  2. CELEBREX [Suspect]
     Indication: SPINAL OSTEOARTHRITIS
  3. NEURONTIN [Suspect]
     Indication: OSTEOARTHRITIS
     Dosage: UNK, DAILY AT NIGHT
  4. NEURONTIN [Suspect]
     Indication: SPINAL OSTEOARTHRITIS
  5. DAYPRO [Suspect]
     Indication: OSTEOARTHRITIS
     Dosage: UNK, 2X/DAY
     Dates: end: 20130115
  6. DAYPRO [Suspect]
     Indication: SPINAL OSTEOARTHRITIS
  7. DAYPRO [Suspect]
     Indication: OSTEOARTHRITIS
  8. TRAMADOL HCL [Suspect]
     Indication: OSTEOARTHRITIS
     Dosage: 100 MG, AS NEEDED
  9. TRAMADOL HCL [Suspect]
     Indication: SPINAL OSTEOARTHRITIS
  10. VOLTAREN [Suspect]
     Indication: OSTEOARTHRITIS
     Dosage: UNK
  11. VOLTAREN [Suspect]
     Indication: SPINAL OSTEOARTHRITIS
  12. MOBIC [Suspect]
     Indication: OSTEOARTHRITIS
     Dosage: UNK
  13. MOBIC [Suspect]
     Indication: SPINAL OSTEOARTHRITIS
  14. MOBIC [Suspect]
     Indication: OSTEOARTHRITIS

REACTIONS (2)
  - Drug ineffective [Unknown]
  - Influenza like illness [Not Recovered/Not Resolved]
